FAERS Safety Report 11162481 (Version 1)
Quarter: 2015Q2

REPORT INFORMATION
  Report Type: Spontaneous
  Country: US (occurrence: US)
  Receive Date: 20150604
  Receipt Date: 20150604
  Transmission Date: 20150821
  Serious: No
  Sender: FDA-Public Use
  Company Number: US-SA-2015SA046168

PATIENT
  Age: 34 Year
  Sex: Female

DRUGS (2)
  1. LANTUS [Suspect]
     Active Substance: INSULIN GLARGINE
     Indication: TYPE 2 DIABETES MELLITUS
     Dosage: DOSE:50 UNITS BID, INCREASES LANTUS BY 2 TO 8 UNITS IF HER BLOOD SUGAR READINGS ARE HIGH
     Route: 065
     Dates: start: 20150109
  2. METFORMIN [Concomitant]
     Active Substance: METFORMIN HYDROCHLORIDE
     Dates: start: 201305

REACTIONS (3)
  - Dysgeusia [Recovered/Resolved]
  - Hypoglycaemia [Unknown]
  - Drug administration error [Unknown]

NARRATIVE: CASE EVENT DATE: 20150109
